FAERS Safety Report 25077068 (Version 2)
Quarter: 2025Q2

REPORT INFORMATION
  Report Type: Spontaneous
  Country: ES (occurrence: ES)
  Receive Date: 20250314
  Receipt Date: 20250529
  Transmission Date: 20250716
  Serious: Yes (Other)
  Sender: CELLTRION
  Company Number: ES-AMGEN-ESPSP2024181779

PATIENT

DRUGS (2)
  1. ADALIMUMAB [Suspect]
     Active Substance: ADALIMUMAB
     Indication: Crohn^s disease
     Route: 065
  2. USTEKINUMAB [Suspect]
     Active Substance: USTEKINUMAB
     Indication: Crohn^s disease
     Dosage: 90 MILLIGRAM, Q4WK (90 MG EVERY 4 WEEK)
     Route: 058

REACTIONS (5)
  - Intestinal obstruction [Unknown]
  - Ileal stenosis [Unknown]
  - Fistula of small intestine [Unknown]
  - Foreign body in gastrointestinal tract [Unknown]
  - Loss of therapeutic response [Unknown]
